FAERS Safety Report 19904089 (Version 2)
Quarter: 2021Q4

REPORT INFORMATION
  Report Type: Report from Study
  Country: US (occurrence: None)
  Receive Date: 20210930
  Receipt Date: 20211126
  Transmission Date: 20220303
  Serious: Yes (Hospitalization)
  Sender: FDA-Public Use
  Company Number: US-MERCK HEALTHCARE KGAA-9268794

PATIENT
  Age: 67 Year
  Sex: Female
  Weight: 63 kg

DRUGS (11)
  1. REBIF [Suspect]
     Active Substance: INTERFERON BETA-1A
     Indication: Multiple sclerosis
     Dosage: WEANING OFF
     Route: 058
     Dates: start: 20030423
  2. REBIF [Suspect]
     Active Substance: INTERFERON BETA-1A
     Route: 058
     Dates: start: 2008, end: 20210816
  3. REBIF [Suspect]
     Active Substance: INTERFERON BETA-1A
     Route: 058
     Dates: start: 20210830
  4. VITAMIN D3 [Concomitant]
     Active Substance: CHOLECALCIFEROL
     Indication: Product used for unknown indication
  5. MAGNESIUM [Concomitant]
     Active Substance: MAGNESIUM
     Indication: Product used for unknown indication
     Dosage: AT BEDTIME
  6. LEVOTHYROXINE [Concomitant]
     Active Substance: LEVOTHYROXINE
     Indication: Hypothyroidism
     Dosage: ONCE IN THE MORNING
     Route: 048
     Dates: start: 20181113
  7. LISINOPRIL [Concomitant]
     Active Substance: LISINOPRIL
     Indication: Hypertension
     Dosage: ONCE IN THE MORNING
     Route: 048
     Dates: start: 20160504
  8. VERAPAMIL [Concomitant]
     Active Substance: VERAPAMIL HYDROCHLORIDE
     Indication: Migraine
     Dosage: ONCE IN THE MORNING
     Route: 048
     Dates: start: 20181109
  9. ROSUVASTATIN [Concomitant]
     Active Substance: ROSUVASTATIN
     Indication: Blood cholesterol increased
     Dosage: ONCE AT BED TIME
     Route: 048
     Dates: start: 20181113
  10. CHLORZOXAZONE [Concomitant]
     Active Substance: CHLORZOXAZONE
     Indication: Muscle relaxant therapy
     Route: 048
     Dates: start: 20211006
  11. METHENAMINE HIPPURATE [Concomitant]
     Active Substance: METHENAMINE HIPPURATE
     Indication: Urinary tract infection
     Route: 048
     Dates: start: 20180316

REACTIONS (2)
  - Arthralgia [Recovered/Resolved]
  - Off label use [Unknown]

NARRATIVE: CASE EVENT DATE: 20210830
